FAERS Safety Report 13840314 (Version 1)
Quarter: 2017Q3

REPORT INFORMATION
  Report Type: Spontaneous
  Country: JP (occurrence: JP)
  Receive Date: 20170807
  Receipt Date: 20170807
  Transmission Date: 20171127
  Serious: Yes (Other)
  Sender: FDA-Public Use
  Company Number: JP-SUNOVION-2017SUN003455

PATIENT
  Age: 71 Year
  Sex: Female

DRUGS (1)
  1. LUNESTA [Suspect]
     Active Substance: ESZOPICLONE
     Dosage: UNK MG, UNK
     Route: 048

REACTIONS (1)
  - Delirium [Recovered/Resolved]
